FAERS Safety Report 20678082 (Version 6)
Quarter: 2022Q4

REPORT INFORMATION
  Report Type: Report from Study
  Country: JP (occurrence: JP)
  Receive Date: 20220406
  Receipt Date: 20221031
  Transmission Date: 20230112
  Serious: Yes (Other)
  Sender: FDA-Public Use
  Company Number: JP-ASTELLAS-2022JP005332

PATIENT
  Age: 72 Year
  Sex: Female

DRUGS (1)
  1. ENFORTUMAB VEDOTIN [Suspect]
     Active Substance: ENFORTUMAB VEDOTIN
     Indication: Transitional cell carcinoma
     Dosage: 1 MG/KG, ONCE A WEEK, 3 CONSECUTIVE WEEKS, WITHDRAWAL IN THE 4TH WEEK
     Route: 041
     Dates: start: 20220105

REACTIONS (3)
  - Myelosuppression [Recovered/Resolved]
  - Alopecia [Recovering/Resolving]
  - Taste disorder [Recovering/Resolving]

NARRATIVE: CASE EVENT DATE: 20220316
